FAERS Safety Report 6689912-6 (Version None)
Quarter: 2010Q2

REPORT INFORMATION
  Report Type: 
  Country: None (occurrence: None)
  Receive Date: 20100421
  Receipt Date: 20100420
  Transmission Date: 20101027
  Serious: Yes (Other)
  Sender: FDA-Public Use
  Company Number: DE-SANOFI-AVENTIS-2010SA015890

PATIENT
  Age: 77 Year
  Sex: Female
  Weight: 93 kg

DRUGS (9)
  1. MULTAQ [Suspect]
     Route: 048
     Dates: start: 20100201, end: 20100212
  2. MARCUMAR [Concomitant]
     Indication: ATRIAL FIBRILLATION
     Route: 065
  3. METOPROLOL TARTRATE [Concomitant]
     Indication: ATRIAL FIBRILLATION
     Route: 065
  4. RAMIPRIL [Concomitant]
     Indication: HYPERTENSION
     Route: 065
  5. FELODIPINE [Concomitant]
     Indication: HYPERTENSION
     Route: 065
  6. TORSEMIDE [Concomitant]
     Indication: HYPERTENSION
     Route: 065
  7. MOXONIDINE [Concomitant]
     Indication: HYPERTENSION
     Route: 065
  8. SIMVASTATIN [Concomitant]
     Route: 065
  9. PANTOPRAZOLE [Concomitant]
     Indication: DRUG USE FOR UNKNOWN INDICATION
     Route: 065

REACTIONS (2)
  - ANGIOEDEMA [None]
  - OEDEMA PERIPHERAL [None]
